FAERS Safety Report 5392208-6 (Version None)
Quarter: 2007Q3

REPORT INFORMATION
  Report Type: 
  Country: None (occurrence: None)
  Receive Date: 20070720
  Receipt Date: 20070713
  Transmission Date: 20080115
  Serious: Yes (Life-Threatening)
  Sender: FDA-Public Use
  Company Number: ES-AVENTIS-200715382GDDC

PATIENT
  Age: 42 Year
  Sex: Male

DRUGS (1)
  1. MINIRIN [Suspect]
     Indication: FACTOR VIII DEFICIENCY
     Route: 042
     Dates: start: 20060621, end: 20060621

REACTIONS (2)
  - COMA [None]
  - HYPONATRAEMIA [None]
